FAERS Safety Report 9057015 (Version 1)
Quarter: 2013Q1

REPORT INFORMATION
  Report Type: Report from Study
  Country: US (occurrence: US)
  Receive Date: 20130131
  Receipt Date: 20130131
  Transmission Date: 20140127
  Serious: Yes (Other)
  Sender: FDA-Public Use
  Company Number: US-ABBOTT-12P-163-0992502-00

PATIENT
  Age: 19 Year
  Sex: Female

DRUGS (4)
  1. HUMIRA [Suspect]
     Indication: CROHN^S DISEASE
     Dates: start: 201108
  2. ORTHO TRI CYCLEN [Concomitant]
     Indication: PRODUCT USED FOR UNKNOWN INDICATION
     Dosage: DAILY
  3. OMEPRAZOLE [Concomitant]
     Indication: PRODUCT USED FOR UNKNOWN INDICATION
     Dosage: DAILY
  4. ABDOMINAL SPASM MEDICATION [Concomitant]
     Indication: ABDOMINAL RIGIDITY

REACTIONS (4)
  - Tonsillectomy [Recovered/Resolved]
  - Injection site anaesthesia [Recovered/Resolved]
  - Injection site anaesthesia [Recovered/Resolved]
  - Hypoaesthesia [Recovered/Resolved]
